FAERS Safety Report 7423048-1 (Version None)
Quarter: 2011Q2

REPORT INFORMATION
  Report Type: 
  Country: None (occurrence: None)
  Receive Date: 20110419
  Receipt Date: 20110411
  Transmission Date: 20111010
  Serious: Yes (Other)
  Sender: FDA-Public Use
  Company Number: US-ELI_LILLY_AND_COMPANY-US201104003282

PATIENT
  Sex: Male

DRUGS (1)
  1. EFFIENT [Suspect]
     Indication: PERCUTANEOUS CORONARY INTERVENTION

REACTIONS (2)
  - THROMBOSIS IN DEVICE [None]
  - DRUG DOSE OMISSION [None]
